FAERS Safety Report 9250614 (Version 1)
Quarter: 2013Q2

REPORT INFORMATION
  Report Type: Report from Study
  Country: US (occurrence: US)
  Receive Date: 20130424
  Receipt Date: 20130424
  Transmission Date: 20140414
  Serious: Yes (Hospitalization)
  Sender: FDA-Public Use
  Company Number: US-ROCHE-1214625

PATIENT
  Age: 49 Year
  Sex: Female
  Weight: 68.65 kg

DRUGS (18)
  1. BEVACIZUMAB [Suspect]
     Indication: COLORECTAL CANCER METASTATIC
     Route: 042
     Dates: start: 20121009, end: 20121119
  2. FLUOROURACIL [Suspect]
     Indication: COLORECTAL CANCER METASTATIC
     Route: 042
     Dates: start: 20121009, end: 20121119
  3. FLUOROURACIL [Suspect]
     Route: 042
     Dates: start: 20130109
  4. OXALIPLATIN [Suspect]
     Indication: COLORECTAL CANCER METASTATIC
     Route: 042
     Dates: start: 20121009, end: 20121119
  5. OXALIPLATIN [Suspect]
     Route: 042
     Dates: start: 20130109
  6. LEUCOVORIN [Suspect]
     Indication: COLORECTAL CANCER METASTATIC
     Route: 042
     Dates: start: 20121009, end: 20121119
  7. LEUCOVORIN [Suspect]
     Route: 042
  8. DURAGESIC [Concomitant]
     Indication: ABDOMINAL PAIN
     Route: 065
     Dates: start: 20121119
  9. ATENOLOL HCL [Concomitant]
     Indication: HYPERTENSION
     Route: 065
     Dates: start: 20121023
  10. LEXAPRO [Concomitant]
     Indication: DEPRESSION
     Route: 065
     Dates: start: 20120828
  11. ATIVAN [Concomitant]
     Indication: NAUSEA
  12. RITALIN [Concomitant]
     Indication: NARCOLEPSY
     Route: 065
     Dates: start: 20030820
  13. TRAZODONE [Concomitant]
     Indication: INSOMNIA
     Route: 065
     Dates: start: 20120820
  14. PREVACID [Concomitant]
     Indication: GASTROOESOPHAGEAL REFLUX DISEASE
     Route: 065
     Dates: start: 201208
  15. PERI-COLACE [Concomitant]
     Indication: CONSTIPATION
     Route: 065
     Dates: start: 201208, end: 20121121
  16. MORPHINE [Concomitant]
     Indication: PAIN
     Route: 042
     Dates: start: 20121101
  17. MORPHINE [Concomitant]
     Dosage: INCREASED DOSE
     Route: 042
  18. SENOKOT [Concomitant]
     Indication: CONSTIPATION
     Route: 065
     Dates: start: 201208, end: 20121121

REACTIONS (2)
  - Pain [Recovered/Resolved]
  - Clostridium difficile colitis [Recovered/Resolved]
